FAERS Safety Report 10176342 (Version 1)
Quarter: 2014Q2

REPORT INFORMATION
  Report Type: Spontaneous
  Country: CA (occurrence: CA)
  Receive Date: 20140516
  Receipt Date: 20140516
  Transmission Date: 20141212
  Serious: Yes (Life-Threatening)
  Sender: FDA-Public Use
  Company Number: CA-B.I. PHARMACEUTICALS,INC./RIDGEFIELD-2014-BI-21303CN

PATIENT
  Sex: Female
  Weight: 68 kg

DRUGS (5)
  1. MICARDIS PLUS [Suspect]
     Indication: PRODUCT USED FOR UNKNOWN INDICATION
     Dosage: 1 ANZ
     Route: 048
  2. DIAMICRON MR [Concomitant]
     Route: 065
  3. JANUVIA [Concomitant]
     Route: 065
  4. LANTUS [Concomitant]
     Dosage: FORMULATION: SOLUTION SUBCUTANEOUS
     Route: 065
  5. METFORMIN [Concomitant]
     Route: 065

REACTIONS (4)
  - Dizziness [Recovered/Resolved]
  - Headache [Recovered/Resolved]
  - Nausea [Recovered/Resolved]
  - Swollen tongue [Recovered/Resolved]
